FAERS Safety Report 5962506-3 (Version None)
Quarter: 2008Q4

REPORT INFORMATION
  Report Type: 
  Country: None (occurrence: None)
  Receive Date: 20081121
  Receipt Date: 20081111
  Transmission Date: 20090506
  Serious: Yes (Other)
  Sender: FDA-Public Use
  Company Number: JP-PFIZER INC-2008095016

PATIENT
  Age: 88 Year
  Sex: Female

DRUGS (12)
  1. MYCOBUTIN [Suspect]
     Dosage: DAILY DOSE:300MG
     Route: 048
  2. MYCOBUTIN [Suspect]
     Route: 048
     Dates: start: 20081020, end: 20081031
  3. DEPAS [Concomitant]
     Route: 048
  4. DILTIAZEM HYDROCHLORIDE [Concomitant]
  5. GASMOTIN [Concomitant]
     Route: 048
  6. CORTRIL [Concomitant]
     Route: 048
  7. CYCLOSERINE [Concomitant]
     Route: 048
  8. TOLEDOMIN [Concomitant]
     Route: 048
  9. FAMOTIDINE [Concomitant]
  10. CLEANAL [Concomitant]
  11. INSULIN [Concomitant]
  12. TUBERACTIN [Concomitant]
     Route: 030

REACTIONS (9)
  - ALTERED STATE OF CONSCIOUSNESS [None]
  - ANXIETY [None]
  - BLOOD MAGNESIUM DECREASED [None]
  - DEPRESSION [None]
  - DIARRHOEA [None]
  - NECK PAIN [None]
  - ORAL PAIN [None]
  - PSYCHIATRIC SYMPTOM [None]
  - THIRST [None]
